FAERS Safety Report 9683032 (Version 2)
Quarter: 2013Q4

REPORT INFORMATION
  Report Type: Spontaneous
  Country: US (occurrence: US)
  Receive Date: 20131112
  Receipt Date: 20131122
  Transmission Date: 20140711
  Serious: No
  Sender: FDA-Public Use
  Company Number: US-PFIZER INC-2013319952

PATIENT
  Age: 52 Year
  Sex: Female
  Weight: 48.07 kg

DRUGS (6)
  1. DILANTIN [Suspect]
     Indication: CONVULSION
     Dosage: 125 MG, UNK
     Route: 048
     Dates: start: 1974
  2. DILANTIN [Suspect]
     Indication: EPILEPSY
  3. MYSOLINE [Concomitant]
     Indication: CONVULSION
     Dosage: 125 MG, 1X/DAY (NOON)
  4. VALIUM [Concomitant]
     Indication: CONVULSION
     Dosage: 2 MG, 4X/DAY
  5. NITROGLYCERIN [Concomitant]
     Indication: CARDIAC DISORDER
     Dosage: PRN, 1/2 TAB AM 3/4 HS
  6. SYNTHROID [Concomitant]
     Indication: HYPOTHYROIDISM
     Dosage: 75 UG, 1X/DAY

REACTIONS (1)
  - Complex regional pain syndrome [Not Recovered/Not Resolved]
